FAERS Safety Report 20840793 (Version 1)
Quarter: 2022Q2

REPORT INFORMATION
  Report Type: Spontaneous
  Country: US (occurrence: US)
  Receive Date: 20220517
  Receipt Date: 20220517
  Transmission Date: 20220721
  Serious: No
  Sender: FDA-Public Use
  Company Number: US-PFIZER INC-202200654950

PATIENT
  Age: 72 Year
  Sex: Female
  Weight: 72.57 kg

DRUGS (1)
  1. ACCUPRIL [Suspect]
     Active Substance: QUINAPRIL HYDROCHLORIDE
     Indication: Hypertension

REACTIONS (6)
  - Recalled product administered [Unknown]
  - Palpitations [Unknown]
  - Headache [Unknown]
  - Choking sensation [Unknown]
  - Hypersensitivity [Unknown]
  - Epistaxis [Unknown]
